FAERS Safety Report 10302482 (Version 1)
Quarter: 2014Q3

REPORT INFORMATION
  Report Type: Spontaneous
  Country: US (occurrence: US)
  Receive Date: 20140714
  Receipt Date: 20140714
  Transmission Date: 20150326
  Serious: No
  Sender: FDA-Public Use
  Company Number: US-PFIZER INC-2014192642

PATIENT
  Age: 63 Year
  Sex: Male

DRUGS (1)
  1. INLYTA [Suspect]
     Active Substance: AXITINIB
     Indication: RENAL CANCER
     Dosage: 4 MG, 2X/DAY (INLYTA 1MG, TAKE 4 TABLETS EVERY 12 HOURS)
     Route: 048
     Dates: start: 201402

REACTIONS (1)
  - Fatigue [Unknown]
